FAERS Safety Report 8089703-8 (Version None)
Quarter: 2012Q1

REPORT INFORMATION
  Report Type: 
  Country: None (occurrence: None)
  Receive Date: 20120128
  Receipt Date: 20110702
  Transmission Date: 20120608
  Serious: No
  Sender: FDA-Public Use
  Company Number: US-ABBOTT-11P-163-0836070-00

PATIENT
  Age: 42 Year
  Sex: Female

DRUGS (6)
  1. HUMIRA [Suspect]
     Indication: COLITIS ULCERATIVE
     Dates: start: 20110101, end: 20110614
  2. XANAX [Concomitant]
     Indication: ANXIETY
  3. ZOLOFT [Concomitant]
     Indication: ANXIETY
  4. ZOLOFT [Concomitant]
     Indication: DEPRESSION
  5. COUMADIN [Concomitant]
     Indication: COAGULOPATHY
  6. XANAX [Concomitant]
     Indication: DEPRESSION

REACTIONS (2)
  - BACK PAIN [None]
  - FATIGUE [None]
